FAERS Safety Report 5914905-3 (Version None)
Quarter: 2008Q4

REPORT INFORMATION
  Report Type: 
  Country: None (occurrence: None)
  Receive Date: 20081010
  Receipt Date: 20081006
  Transmission Date: 20090506
  Serious: No
  Sender: FDA-Public Use
  Company Number: PHHY2008GB22947

PATIENT

DRUGS (1)
  1. EUCREAS [Suspect]
     Dosage: UNK
     Route: 048

REACTIONS (1)
  - ARTHROPOD BITE [None]
